FAERS Safety Report 8515453-7 (Version None)
Quarter: 2012Q3

REPORT INFORMATION
  Report Type: 
  Country: None (occurrence: None)
  Receive Date: 20120705
  Receipt Date: 20120625
  Transmission Date: 20120928
  Serious: Yes (Hospitalization)
  Sender: FDA-Public Use
  Company Number: 2012P1037805

PATIENT
  Age: 74 Year
  Sex: Female
  Weight: 55 kg

DRUGS (2)
  1. LANSOPRAZOLE [Concomitant]
  2. FAMOTIDINE [Suspect]
     Indication: GASTRODUODENAL ULCER
     Dosage: 20 MG;PO
     Route: 048

REACTIONS (3)
  - DUODENITIS [None]
  - ALLERGIC GRANULOMATOUS ANGIITIS [None]
  - DRUG INEFFECTIVE [None]
